FAERS Safety Report 10412553 (Version 1)
Quarter: 2014Q3

REPORT INFORMATION
  Report Type: Spontaneous
  Country: US (occurrence: None)
  Receive Date: 20140826
  Receipt Date: 20140826
  Transmission Date: 20150326
  Serious: Yes (Life-Threatening)
  Sender: FDA-Public Use
  Company Number: None

PATIENT
  Age: 43 Year
  Sex: Female
  Weight: 81.65 kg

DRUGS (3)
  1. WELLBUTRIN [Suspect]
     Active Substance: BUPROPION HYDROCHLORIDE
     Indication: BIPOLAR II DISORDER
     Dates: start: 20060801, end: 20140724
  2. TOPAMAX [Suspect]
     Active Substance: TOPIRAMATE
     Indication: BIPOLAR II DISORDER
     Dosage: 2
     Dates: start: 20061130, end: 20140824
  3. WELLBUTRIN [Suspect]
     Active Substance: BUPROPION HYDROCHLORIDE
     Indication: DEPRESSION
     Dates: start: 20060801, end: 20140724

REACTIONS (4)
  - Substance-induced psychotic disorder [None]
  - Aggression [None]
  - Anger [None]
  - Suicide attempt [None]
